FAERS Safety Report 5848187-8 (Version None)
Quarter: 2008Q3

REPORT INFORMATION
  Report Type: 
  Country: None (occurrence: None)
  Receive Date: 20080818
  Receipt Date: 20080818
  Transmission Date: 20090109
  Serious: Yes (Other)
  Sender: FDA-Public Use
  Company Number: A0743117A

PATIENT
  Age: 2 Year
  Sex: Male

DRUGS (5)
  1. CARVEDILOL [Suspect]
     Indication: DRUG USE FOR UNKNOWN INDICATION
     Dosage: 3.125MG SINGLE DOSE
     Route: 048
     Dates: start: 20080727, end: 20080727
  2. LEXOTAN [Suspect]
     Indication: DRUG USE FOR UNKNOWN INDICATION
     Dosage: 6MG SINGLE DOSE
     Route: 048
     Dates: start: 20080727, end: 20080727
  3. SIMVASTATIN [Suspect]
     Indication: DRUG USE FOR UNKNOWN INDICATION
     Dosage: 20MG SINGLE DOSE
     Route: 048
     Dates: start: 20080727, end: 20080727
  4. COUGH SYRUP [Suspect]
     Indication: COUGH
     Route: 048
     Dates: start: 20080727, end: 20080727
  5. ACEBROPHYLLINE [Concomitant]
     Dates: start: 20080713

REACTIONS (5)
  - ADVERSE EVENT [None]
  - AGGRESSION [None]
  - INSOMNIA [None]
  - MEDICATION ERROR [None]
  - VOMITING [None]
